FAERS Safety Report 13284240 (Version 2)
Quarter: 2017Q1

REPORT INFORMATION
  Report Type: Spontaneous
  Country: RU (occurrence: RU)
  Receive Date: 20170301
  Receipt Date: 20170309
  Transmission Date: 20170428
  Serious: No
  Sender: FDA-Public Use
  Company Number: RU-ASTRAZENECA-2017SE21477

PATIENT
  Age: 30 Year
  Sex: Female

DRUGS (1)
  1. SYMBICORT [Suspect]
     Active Substance: BUDESONIDE\FORMOTEROL FUMARATE DIHYDRATE
     Indication: ASTHMA
     Dosage: TWO INHALATIONS TWO TIMES A DAY
     Route: 055
     Dates: start: 201612

REACTIONS (3)
  - Cough [Recovered/Resolved]
  - Dyspnoea [Unknown]
  - Chest discomfort [Recovered/Resolved]

NARRATIVE: CASE EVENT DATE: 201612
